FAERS Safety Report 7409239-4 (Version None)
Quarter: 2011Q2

REPORT INFORMATION
  Report Type: 
  Country: None (occurrence: None)
  Receive Date: 20110412
  Receipt Date: 20110407
  Transmission Date: 20111010
  Serious: Yes (Hospitalization)
  Sender: FDA-Public Use
  Company Number: A0886589A

PATIENT
  Age: 62 Year
  Sex: Male
  Weight: 97.7 kg

DRUGS (9)
  1. PROSCAR [Concomitant]
  2. AVANDIA [Suspect]
     Indication: TYPE 2 DIABETES MELLITUS
     Dosage: 4MG PER DAY
     Route: 048
     Dates: end: 20060101
  3. VIAGRA [Concomitant]
  4. VYTORIN [Concomitant]
  5. ATENOLOL [Concomitant]
  6. ALLEGRA [Concomitant]
  7. AVANDARYL [Suspect]
     Indication: DIABETES MELLITUS
     Dosage: 2TAB PER DAY
     Route: 048
     Dates: start: 20060101, end: 20100101
  8. AMBIEN [Concomitant]
  9. ANTARA (MICRONIZED) [Concomitant]

REACTIONS (4)
  - MYOCARDIAL ISCHAEMIA [None]
  - CORONARY ARTERY BYPASS [None]
  - CORONARY ARTERIAL STENT INSERTION [None]
  - CORONARY ARTERY DISEASE [None]
